FAERS Safety Report 20595347 (Version 1)
Quarter: 2022Q1

REPORT INFORMATION
  Report Type: Spontaneous
  Country: US (occurrence: None)
  Receive Date: 20220314
  Receipt Date: 20220314
  Transmission Date: 20220423
  Serious: Yes (Death)
  Sender: FDA-Public Use
  Company Number: None

PATIENT
  Age: 65 Year
  Sex: Female

DRUGS (2)
  1. VITRAKVI [Suspect]
     Active Substance: LAROTRECTINIB
     Indication: Breast cancer female
     Dosage: TAKE 1 CAPSULE BY MOUTH 2 TIMES A DAY ON MONDAY, WEDNESDAY, FRIDAY. TAKE 1 CAPSULE ONCE DAILY ON TU
     Route: 048
     Dates: start: 202106
  2. VITRAKVI [Suspect]
     Active Substance: LAROTRECTINIB
     Dosage: OTHER FREQUENCY : QD TUE, SAT, SUN;?
     Route: 048

REACTIONS (1)
  - Death [None]

NARRATIVE: CASE EVENT DATE: 20220228
